FAERS Safety Report 4383286-1 (Version None)
Quarter: 2004Q2

REPORT INFORMATION
  Report Type: 
  Country: None (occurrence: None)
  Receive Date: 20040618
  Receipt Date: 20040325
  Transmission Date: 20050107
  Serious: Yes (Hospitalization, Disabling)
  Sender: FDA-Public Use
  Company Number: JP-JNJFOC-20040204745

PATIENT
  Age: 47 Year
  Sex: Female
  Weight: 48.9 kg

DRUGS (7)
  1. REMICADE [Suspect]
     Indication: RHEUMATOID ARTHRITIS
     Dosage: 159 MG, INTRAVENOUS DRIP
     Route: 041
     Dates: start: 20031022
  2. REMICADE [Suspect]
     Indication: RHEUMATOID ARTHRITIS
     Dosage: 159 MG, INTRAVENOUS DRIP
     Route: 041
     Dates: start: 20031104
  3. REMICADE [Suspect]
     Indication: RHEUMATOID ARTHRITIS
     Dosage: 159 MG, INTRAVENOUS DRIP
     Route: 041
     Dates: start: 20031216
  4. RHEUMATREX [Concomitant]
  5. LOXONIN (LOXOPROFEN SODIUM) TABLETS [Concomitant]
  6. SELBEX (TEPRENONE) CAPSULES [Concomitant]
  7. PREDNISOLONE [Concomitant]

REACTIONS (3)
  - ALANINE AMINOTRANSFERASE INCREASED [None]
  - ASPARTATE AMINOTRANSFERASE INCREASED [None]
  - POLYMYOSITIS [None]
